FAERS Safety Report 23975901 (Version 1)
Quarter: 2024Q2

REPORT INFORMATION
  Report Type: Spontaneous
  Country: US (occurrence: US)
  Receive Date: 20240614
  Receipt Date: 20240614
  Transmission Date: 20240715
  Serious: Yes (Other)
  Sender: FDA-Public Use
  Company Number: US-STRIDES ARCOLAB LIMITED-2024SP006839

PATIENT
  Age: 40 Year
  Sex: Female

DRUGS (30)
  1. CALCITRIOL [Suspect]
     Active Substance: CALCITRIOL
     Indication: Hypoparathyroidism
     Dosage: 1.5 MICROGRAM, QD; FIRST PREGNANCY 38 WEEKS
     Route: 065
  2. CALCITRIOL [Suspect]
     Active Substance: CALCITRIOL
     Dosage: 1.5 MICROGRAM, QD, BABY GIRL DELIVERED 39 WEEKS
     Route: 065
  3. CALCITRIOL [Suspect]
     Active Substance: CALCITRIOL
     Dosage: 1.5 MICROGRAM, QD,POSTPARTUM 2 DAYS
     Route: 065
  4. CALCITRIOL [Suspect]
     Active Substance: CALCITRIOL
     Dosage: 1.5 MICROGRAM, QD,SECOND PREGNANCY 20 WEEKS
     Route: 065
  5. CALCITRIOL [Suspect]
     Active Substance: CALCITRIOL
     Dosage: 1.5 MICROGRAM, QD,SECOND PREGNANCY 27 WEEKS,
     Route: 065
  6. CALCITRIOL [Suspect]
     Active Substance: CALCITRIOL
     Dosage: 2.0 MICROGRAM, QD, SECOND PREGNANCY 28 WEEKS,
     Route: 065
  7. CALCITRIOL [Suspect]
     Active Substance: CALCITRIOL
     Dosage: 2.0 MICROGRAM, QD,ECOND PREGNANCY 32 WEEKS
     Route: 065
  8. CALCITRIOL [Suspect]
     Active Substance: CALCITRIOL
     Dosage: 2.0 MICROGRAM, QD,SECOND PREGNANCY  34 WEEKS
     Route: 065
  9. CALCITRIOL [Suspect]
     Active Substance: CALCITRIOL
     Dosage: 2.0 MICROGRAM, QD,SECOND PREGNANCY (36 WEEKS)
     Route: 065
  10. CALCITRIOL [Suspect]
     Active Substance: CALCITRIOL
     Dosage: 1.5 MICROGRAM, QD (BABY BOY DELIVERED,39 WEEKS)
     Route: 065
  11. CALCITRIOL [Suspect]
     Active Substance: CALCITRIOL
     Dosage: 1.0 MICROGRAM, QD,POSTPARTUM 7 DAYS
     Route: 065
  12. CALCITRIOL [Suspect]
     Active Substance: CALCITRIOL
     Dosage: 0.5 MICROGRAM, QD, POSTPARTUM 10 DAYS
     Route: 065
  13. CALCIUM [Suspect]
     Active Substance: CALCIUM
     Indication: Hypoparathyroidism
     Dosage: 3500 MILLIGRAM, QD, FIRST PREGNANCY
     Route: 065
  14. CALCIUM [Suspect]
     Active Substance: CALCIUM
     Dosage: 3000 MG, QD ,BABY GIRL DELIVERED 39 WEEKS
     Route: 065
  15. CALCIUM [Suspect]
     Active Substance: CALCIUM
     Dosage: 1500 MILLIGRAM, QD (POSTPARTUM 2 DAYS)
     Route: 065
  16. CALCIUM [Suspect]
     Active Substance: CALCIUM
     Dosage: 500 MILLIGRAM, QD, POSTPARTUM 8 DAYS
     Route: 065
  17. CALCIUM [Suspect]
     Active Substance: CALCIUM
     Dosage: 500 MILLIGRAM, QD, POSTPARTUM 8 WEEKS
     Route: 065
  18. CALCIUM [Suspect]
     Active Substance: CALCIUM
     Dosage: 500 MILLIGRAM, QD, POSTPARTUM 3 MONTHS
     Route: 065
  19. CALCIUM [Suspect]
     Active Substance: CALCIUM
     Dosage: 500 MILLIGRAM, QD, POSTPARTUM 6 MONTHS
     Route: 065
  20. CALCIUM [Suspect]
     Active Substance: CALCIUM
     Dosage: 500 MILLIGRAM, QD, POSTPARTUM 8 MONTHS
     Route: 065
  21. CALCIUM [Suspect]
     Active Substance: CALCIUM
     Dosage: 500 MILLIGRAM, QD, SECOND PREGNANCY 12 WEEKS
     Route: 065
  22. CALCIUM [Suspect]
     Active Substance: CALCIUM
     Dosage: 5000 MILLIGRAM, QD,SECOND PREGNANCY 20 WEEKS
     Route: 065
  23. CALCIUM [Suspect]
     Active Substance: CALCIUM
     Dosage: 5000 MILLIGRAM, QD,SECOND PREGNANCY 27 WEEKS
     Route: 065
  24. CALCIUM [Suspect]
     Active Substance: CALCIUM
     Dosage: 6000 MILLIGRAM, QD,SECOND PREGNANCY 28 WEEKS
     Route: 065
  25. CALCIUM [Suspect]
     Active Substance: CALCIUM
     Dosage: 6000 MILLIGRAM, QD,SECOND PREGNANCY 32 WEEKS
     Route: 065
  26. CALCIUM [Suspect]
     Active Substance: CALCIUM
     Dosage: 6000 MILLIGRAM, QD,SECOND PREGNANCY 34 WEEKS
     Route: 065
  27. CALCIUM [Suspect]
     Active Substance: CALCIUM
     Dosage: 4000 MILLIGRAM, QD,SECOND PREGNANCY 36 WEEKS
     Route: 065
  28. CALCIUM [Suspect]
     Active Substance: CALCIUM
     Dosage: 4500 MILLIGRAM, QD,BABY BOY DELIVERED
     Route: 065
  29. CALCIUM [Suspect]
     Active Substance: CALCIUM
     Dosage: 3500 MILLIGRAM, QD,POSTPARTUM 7 DAYS
     Route: 065
  30. CALCIUM [Suspect]
     Active Substance: CALCIUM
     Dosage: 1500 MILLIGRAM, QD, POSTPARTUM 10 DAYS
     Route: 065

REACTIONS (4)
  - Pre-eclampsia [Unknown]
  - Maternal exposure during pregnancy [Unknown]
  - Maternal exposure during breast feeding [Unknown]
  - Hypercalcaemia [Unknown]

NARRATIVE: CASE EVENT DATE: 20180101
